FAERS Safety Report 8037193-3 (Version None)
Quarter: 2012Q1

REPORT INFORMATION
  Report Type: 
  Country: None (occurrence: None)
  Receive Date: 20120109
  Receipt Date: 20111223
  Transmission Date: 20120608
  Serious: Yes (Other)
  Sender: FDA-Public Use
  Company Number: 1147759

PATIENT
  Age: 85 Year
  Sex: Female
  Weight: 75 kg

DRUGS (3)
  1. HEPARIN SODIUM INJECTION [Suspect]
     Indication: PRODUCT USED FOR UNKNOWN INDICATION
     Dosage: 500U/HR, INTRAVENOUS DRIP : 700U, INTRAVENOUS DRIP
     Route: 041
     Dates: start: 20111209
  2. HEPARIN SODIUM INJECTION [Suspect]
     Indication: PRODUCT USED FOR UNKNOWN INDICATION
     Dosage: 500U/HR, INTRAVENOUS DRIP : 700U, INTRAVENOUS DRIP
     Route: 041
     Dates: start: 20111211, end: 20111211
  3. SODIUM CHLORIDE 0.9% [Suspect]
     Indication: PRODUCT USED FOR UNKNOWN INDICATION
     Dosage: 250 ML, INTRAVENOUS DRIP
     Route: 041
     Dates: start: 20111211, end: 20111211

REACTIONS (6)
  - ACTIVATED PARTIAL THROMBOPLASTIN TIME PROLONGED [None]
  - INTERNATIONAL NORMALISED RATIO INCREASED [None]
  - PROTHROMBIN TIME PROLONGED [None]
  - DEVICE COMPUTER ISSUE [None]
  - INCORRECT DRUG ADMINISTRATION RATE [None]
  - CIRCUMSTANCE OR INFORMATION CAPABLE OF LEADING TO MEDICATION ERROR [None]
